FAERS Safety Report 8428582-3 (Version None)
Quarter: 2012Q2

REPORT INFORMATION
  Report Type: 
  Country: None (occurrence: None)
  Receive Date: 20120605
  Receipt Date: 20120523
  Transmission Date: 20120825
  Serious: Yes (Hospitalization, Other)
  Sender: FDA-Public Use
  Company Number: IMP_05855_2012

PATIENT
  Sex: Female
  Weight: 114.3065 kg

DRUGS (3)
  1. DIGOXIN [Suspect]
     Indication: PRODUCT USED FOR UNKNOWN INDICATION
     Dosage: SEE IMAGE
     Route: 048
     Dates: start: 20020101, end: 20120401
  2. DIGOXIN [Suspect]
     Indication: PRODUCT USED FOR UNKNOWN INDICATION
     Dosage: SEE IMAGE
     Route: 048
     Dates: start: 20020101, end: 20120401
  3. DIGOXIN [Suspect]
     Indication: PRODUCT USED FOR UNKNOWN INDICATION
     Dosage: SEE IMAGE
     Route: 048
     Dates: start: 20120414

REACTIONS (4)
  - CARDIOACTIVE DRUG LEVEL INCREASED [None]
  - VOMITING [None]
  - TOXICITY TO VARIOUS AGENTS [None]
  - MALAISE [None]
